FAERS Safety Report 9639838 (Version 1)
Quarter: 2013Q4

REPORT INFORMATION
  Report Type: Spontaneous
  Country: US (occurrence: None)
  Receive Date: 20131021
  Receipt Date: 20131021
  Transmission Date: 20140711
  Serious: Yes (Life-Threatening, Disabling)
  Sender: FDA-Public Use
  Company Number: None

PATIENT
  Age: 55 Year
  Sex: Female
  Weight: 68.95 kg

DRUGS (1)
  1. FLUTICASONE [Suspect]
     Indication: ASTHMA
     Dosage: 1 SPRAY FOUR TIMES DAILY INHALATION
     Route: 055

REACTIONS (6)
  - Adrenal insufficiency [None]
  - Depression [None]
  - Weight increased [None]
  - Insomnia [None]
  - Muscular weakness [None]
  - Increased tendency to bruise [None]
